FAERS Safety Report 23044730 (Version 2)
Quarter: 2023Q4

REPORT INFORMATION
  Report Type: Spontaneous
  Country: US (occurrence: US)
  Receive Date: 20231009
  Receipt Date: 20231011
  Transmission Date: 20240110
  Serious: No
  Sender: FDA-Public Use
  Company Number: US-JNJFOC-20230957438

PATIENT
  Sex: Female
  Weight: 105.23 kg

DRUGS (6)
  1. TYLENOL [Suspect]
     Active Substance: ACETAMINOPHEN
     Indication: Back pain
     Route: 065
  2. TYLENOL [Suspect]
     Active Substance: ACETAMINOPHEN
     Indication: Arthralgia
  3. LENVIMA [Concomitant]
     Active Substance: LENVATINIB
     Indication: Renal cell carcinoma
     Dosage: 20 MG BY MOUTH DAILY (2X 10MG)
     Route: 048
     Dates: start: 20230901
  4. PEMBROLIZUMAB [Concomitant]
     Active Substance: PEMBROLIZUMAB
     Indication: Product used for unknown indication
     Route: 065
  5. DEMEROL [Concomitant]
     Active Substance: MEPERIDINE HYDROCHLORIDE
     Indication: Back pain
     Route: 065
  6. DEMEROL [Concomitant]
     Active Substance: MEPERIDINE HYDROCHLORIDE
     Indication: Arthralgia

REACTIONS (2)
  - Constipation [Unknown]
  - Drug ineffective [Unknown]
